FAERS Safety Report 17527734 (Version 2)
Quarter: 2020Q2

REPORT INFORMATION
  Report Type: Spontaneous
  Country: US (occurrence: US)
  Receive Date: 20200311
  Receipt Date: 20200507
  Transmission Date: 20200713
  Serious: Yes (Other)
  Sender: FDA-Public Use
  Company Number: US-ROCHE-2566441

PATIENT
  Age: 57 Year
  Sex: Male

DRUGS (2)
  1. RIBAVIRIN. [Suspect]
     Active Substance: RIBAVIRIN
     Indication: CHRONIC HEPATITIS C
     Route: 048
  2. SOFOSBUVIR [Suspect]
     Active Substance: SOFOSBUVIR
     Indication: CHRONIC HEPATITIS C
     Route: 065

REACTIONS (8)
  - Arthralgia [Unknown]
  - Anaemia [Unknown]
  - Retinopathy [Recovered/Resolved]
  - Fatigue [Unknown]
  - Essential tremor [Unknown]
  - Iridocyclitis [Recovered/Resolved]
  - Deafness [Unknown]
  - Nausea [Unknown]
